FAERS Safety Report 8443996-3 (Version None)
Quarter: 2012Q2

REPORT INFORMATION
  Report Type: 
  Country: None (occurrence: None)
  Receive Date: 20120618
  Receipt Date: 20120611
  Transmission Date: 20120825
  Serious: Yes (Other)
  Sender: FDA-Public Use
  Company Number: PHHY2012DE050768

PATIENT
  Sex: Male

DRUGS (1)
  1. SANDOSTATIN [Suspect]
     Indication: NEUROENDOCRINE TUMOUR
     Dosage: 50 UG, Q12H
     Dates: start: 20050101, end: 20080101

REACTIONS (2)
  - DRUG INTOLERANCE [None]
  - DIABETES MELLITUS [None]
